FAERS Safety Report 7762245-2 (Version None)
Quarter: 2011Q3

REPORT INFORMATION
  Report Type: 
  Country: None (occurrence: None)
  Receive Date: 20110920
  Receipt Date: 20110919
  Transmission Date: 20111222
  Serious: Yes (Death)
  Sender: FDA-Public Use
  Company Number: US-ROXANE LABORATORIES, INC.-2011-RO-01312RO

PATIENT
  Sex: Female

DRUGS (3)
  1. METHADONE HCL [Suspect]
  2. COLD MEDICINE [Concomitant]
  3. FENTANYL [Suspect]
     Dates: start: 20100913, end: 20100913

REACTIONS (1)
  - TOXICITY TO VARIOUS AGENTS [None]
